FAERS Safety Report 14937236 (Version 3)
Quarter: 2018Q3

REPORT INFORMATION
  Report Type: Report from Study
  Country: FR (occurrence: FR)
  Receive Date: 20180525
  Receipt Date: 20180831
  Transmission Date: 20181010
  Serious: Yes (Death, Hospitalization, Other)
  Sender: FDA-Public Use
  Company Number: FR-JAZZ-2018-FR-008086

PATIENT

DRUGS (1)
  1. DEFITELIO [Suspect]
     Active Substance: DEFIBROTIDE SODIUM
     Indication: PROPHYLAXIS
     Dosage: 24 MG/KG, QD
     Route: 042
     Dates: start: 20150922, end: 20151015

REACTIONS (4)
  - Transplant rejection [Fatal]
  - Septic shock [Recovered/Resolved]
  - Bone marrow failure [Fatal]
  - Klebsiella sepsis [Fatal]

NARRATIVE: CASE EVENT DATE: 201512
